FAERS Safety Report 15902490 (Version 1)
Quarter: 2019Q1

REPORT INFORMATION
  Report Type: Spontaneous
  Country: IT (occurrence: IT)
  Receive Date: 20190201
  Receipt Date: 20190201
  Transmission Date: 20190417
  Serious: Yes (Other)
  Sender: FDA-Public Use
  Company Number: PHHY2019IT019200

PATIENT
  Age: 53 Year
  Sex: Female

DRUGS (4)
  1. OXALIPLATIN. [Suspect]
     Active Substance: OXALIPLATIN
     Indication: COLORECTAL CANCER
     Dosage: UNK, CYCLIC (8 COURSES OF SYSTEMIC CHEMOTHERAPY)
     Route: 065
  2. FLUOROURACIL. [Concomitant]
     Active Substance: FLUOROURACIL
     Dosage: UNK, CYCLIC (4 COURSES OF DE GRAMONT REGIMEN)
     Route: 065
  3. LEUCOVORIN. [Concomitant]
     Active Substance: LEUCOVORIN
     Indication: COLORECTAL CANCER
     Dosage: UNK, CYCLIC (8 COURSES OF SYSTEMIC CHEMOTHERAPY)
     Route: 065
  4. FLUOROURACIL. [Concomitant]
     Active Substance: FLUOROURACIL
     Indication: COLORECTAL CANCER
     Dosage: UNK, CYCLIC (8 COURSES OF SYSTEMIC CHEMOTHERAPY)
     Route: 065

REACTIONS (3)
  - Neuropathy peripheral [Unknown]
  - Focal nodular hyperplasia [Recovered/Resolved]
  - Thrombocytopenia [Unknown]
